FAERS Safety Report 20424643 (Version 5)
Quarter: 2022Q1

REPORT INFORMATION
  Report Type: Report from Study
  Country: ES (occurrence: ES)
  Receive Date: 20220203
  Receipt Date: 20220331
  Transmission Date: 20220423
  Serious: Yes (Hospitalization, Other)
  Sender: FDA-Public Use
  Company Number: ES-CELLTRION INC.-2022ES000812

PATIENT

DRUGS (11)
  1. TRASTUZUMAB [Suspect]
     Active Substance: TRASTUZUMAB
     Indication: Breast cancer
     Dosage: 366 MG (DOSE: 366)
     Route: 041
     Dates: start: 20211111, end: 20211202
  2. PACLITAXEL [Suspect]
     Active Substance: PACLITAXEL
     Indication: Breast cancer
     Dosage: 140 MG (DOSE: 140)
     Route: 042
     Dates: start: 20211111, end: 20211209
  3. CARBOPLATIN [Suspect]
     Active Substance: CARBOPLATIN
     Indication: Breast cancer
     Dosage: 185 MG (DOSE: 185)
     Route: 042
     Dates: start: 20211111, end: 20211209
  4. ATEZOLIZUMAB [Suspect]
     Active Substance: ATEZOLIZUMAB
     Indication: Breast cancer
     Dosage: 1200 MG (DOSE: 1200)
     Route: 041
     Dates: start: 20211111, end: 20211202
  5. PERTUZUMAB [Suspect]
     Active Substance: PERTUZUMAB
     Indication: Breast cancer
     Dosage: 420 MG (DOSE: 420)
     Route: 042
     Dates: start: 20211111, end: 20211202
  6. METHYLPREDNISOLONE [Concomitant]
     Active Substance: METHYLPREDNISOLONE
     Dosage: 60 MILLIGRAM
     Route: 042
     Dates: start: 20211217
  7. ENOXAPARIN SODIUM [Concomitant]
     Active Substance: ENOXAPARIN SODIUM
     Dosage: 40 MILLIGRAM, EVERY 1 DAY
     Route: 058
     Dates: start: 20211217
  8. OMEPRAZOLE [Concomitant]
     Active Substance: OMEPRAZOLE
     Dosage: 40 MILLIGRAM
     Route: 042
     Dates: start: 20211216
  9. GANCICLOVIR [Concomitant]
     Active Substance: GANCICLOVIR
     Dosage: 600 MG
     Dates: start: 20220126, end: 20220204
  10. MEROPENEM [Concomitant]
     Active Substance: MEROPENEM
     Dosage: 3 G
     Dates: start: 20220126, end: 20220131
  11. DEFLAZACORT [Concomitant]
     Active Substance: DEFLAZACORT
     Dosage: UNK
     Dates: start: 20220208, end: 20220219

REACTIONS (3)
  - Rectal haemorrhage [Recovered/Resolved]
  - Colitis [Recovering/Resolving]
  - Diarrhoea [Recovered/Resolved]

NARRATIVE: CASE EVENT DATE: 20211214
